FAERS Safety Report 11856570 (Version 1)
Quarter: 2015Q4

REPORT INFORMATION
  Report Type: Spontaneous
  Country: NL (occurrence: NL)
  Receive Date: 20151221
  Receipt Date: 20151221
  Transmission Date: 20160305
  Serious: Yes (Other)
  Sender: FDA-Public Use
  Company Number: NL-PFIZER INC-2015448545

PATIENT
  Age: 48 Year
  Sex: Female

DRUGS (3)
  1. METOPROLOLSUCCINAAT SANDOZ [Concomitant]
     Dosage: 50 MG, 1X/DAY
     Route: 048
  2. PRAVASTATIN [Concomitant]
     Active Substance: PRAVASTATIN\PRAVASTATIN SODIUM
     Dosage: 40 MG, 1X/DAY
     Route: 048
     Dates: start: 20150701, end: 20151019
  3. ETHINYLESTRADIOL/LEVONORGESTREL [Suspect]
     Active Substance: ETHINYL ESTRADIOL\LEVONORGESTREL
     Indication: CONTRACEPTION
     Dosage: 1 DF (30/50 UG TABLET), CYCLIC
     Route: 048
     Dates: start: 20080204, end: 20151030

REACTIONS (3)
  - Dyspnoea [Recovering/Resolving]
  - Pharyngeal oedema [Recovering/Resolving]
  - Swollen tongue [Recovering/Resolving]

NARRATIVE: CASE EVENT DATE: 20151015
